FAERS Safety Report 6170519-4 (Version None)
Quarter: 2009Q2

REPORT INFORMATION
  Report Type: 
  Country: None (occurrence: None)
  Receive Date: 20090427
  Receipt Date: 20090427
  Transmission Date: 20091009
  Serious: No
  Sender: FDA-Public Use
  Company Number: None

PATIENT
  Age: 63 Year
  Sex: Female

DRUGS (6)
  1. MORPHINE [Suspect]
     Indication: PAIN MANAGEMENT
     Dosage: 1 MG IV X 1; 2MG IV X 4
     Route: 042
     Dates: start: 20090115
  2. FENTANYL [Suspect]
     Indication: PAIN MANAGEMENT
     Dosage: 25MCG IV X 2
     Route: 042
     Dates: start: 20090115
  3. AMPICILLIN [Concomitant]
  4. CLINDAMYCIN HCL [Concomitant]
  5. ENALAPRIL [Concomitant]
  6. HYDROCHLOROTHIAZIDE [Concomitant]

REACTIONS (3)
  - DEPRESSED LEVEL OF CONSCIOUSNESS [None]
  - RESPIRATORY RATE DECREASED [None]
  - RESPIRATORY RATE INCREASED [None]
